FAERS Safety Report 9100762 (Version 1)
Quarter: 2013Q1

REPORT INFORMATION
  Report Type: Spontaneous
  Country: US (occurrence: US)
  Receive Date: 20130129
  Receipt Date: 20130129
  Transmission Date: 20140127
  Serious: No
  Sender: FDA-Public Use
  Company Number: US-TARO-2012P1035568

PATIENT
  Age: 30 Year
  Sex: Female
  Weight: 65.45 kg

DRUGS (5)
  1. CLOMIPRAMINE HCL [Suspect]
     Indication: OBSESSIVE-COMPULSIVE DISORDER
     Dates: start: 200705, end: 201005
  2. CLOMIPRAMINE HCL [Suspect]
     Indication: OBSESSIVE-COMPULSIVE DISORDER
     Route: 048
     Dates: start: 201005
  3. KLONOPIN [Concomitant]
     Route: 048
  4. ORTHO TRI CYCLEN [Concomitant]
     Route: 048
  5. SYNTHROID [Concomitant]
     Route: 048

REACTIONS (2)
  - Weight increased [Not Recovered/Not Resolved]
  - Galactorrhoea [Not Recovered/Not Resolved]
